FAERS Safety Report 13367922 (Version 1)
Quarter: 2017Q1

REPORT INFORMATION
  Report Type: Report from Study
  Country: US (occurrence: US)
  Receive Date: 20170324
  Receipt Date: 20170324
  Transmission Date: 20170429
  Serious: Yes (Hospitalization)
  Sender: FDA-Public Use
  Company Number: US-PFIZER INC-2017122483

PATIENT
  Age: 9 Year
  Sex: Male

DRUGS (1)
  1. IBUPROFEN. [Suspect]
     Active Substance: IBUPROFEN
     Dosage: UNK
     Route: 048

REACTIONS (3)
  - Nephrotic syndrome [Recovered/Resolved]
  - Acute kidney injury [Recovered/Resolved]
  - Tubulointerstitial nephritis [Recovered/Resolved]
